FAERS Safety Report 6552841-2 (Version None)
Quarter: 2010Q1

REPORT INFORMATION
  Report Type: 
  Country: None (occurrence: None)
  Receive Date: 20100126
  Receipt Date: 20100114
  Transmission Date: 20100710
  Serious: Yes (Hospitalization)
  Sender: FDA-Public Use
  Company Number: ZA-GILEAD-2010-0026459

PATIENT
  Age: 22 Year
  Sex: Female
  Weight: 60 kg

DRUGS (5)
  1. VIREAD [Suspect]
     Indication: HIV INFECTION
     Route: 048
     Dates: start: 20091031, end: 20100106
  2. TENOFOVIR GEL [Suspect]
     Indication: HIV INFECTION
     Route: 067
     Dates: start: 20091031
  3. TRIPHASIL-21 [Concomitant]
     Indication: ORAL CONTRACEPTION
  4. LEVONORGESTREL [Concomitant]
     Indication: ORAL CONTRACEPTION
  5. ETHINYL OESTRADIOL [Concomitant]
     Indication: ORAL CONTRACEPTION

REACTIONS (1)
  - ABORTION SPONTANEOUS [None]
